FAERS Safety Report 24304698 (Version 1)
Quarter: 2024Q3

REPORT INFORMATION
  Report Type: Spontaneous
  Country: US (occurrence: US)
  Receive Date: 20240910
  Receipt Date: 20240910
  Transmission Date: 20241017
  Serious: No
  Sender: JOHNSON AND JOHNSON
  Company Number: US-JNJFOC-20240903040

PATIENT
  Age: 68 Year
  Sex: Male
  Weight: 98 kg

DRUGS (32)
  1. OPSUMIT [Suspect]
     Active Substance: MACITENTAN
     Indication: Product used for unknown indication
     Route: 048
  2. TYVASO DPI [Suspect]
     Active Substance: TREPROSTINIL
     Indication: Pulmonary arterial hypertension
     Route: 055
     Dates: start: 20240630
  3. TYVASO DPI [Suspect]
     Active Substance: TREPROSTINIL
     Route: 055
     Dates: start: 2024
  4. DEXTROSE [Concomitant]
     Active Substance: DEXTROSE\DEXTROSE MONOHYDRATE
  5. EPINEPHRINE HYDROCHLORIDE [Concomitant]
     Active Substance: EPINEPHRINE HYDROCHLORIDE
  6. ADVAIR HFA [Concomitant]
     Active Substance: FLUTICASONE PROPIONATE\SALMETEROL XINAFOATE
  7. CREON [Concomitant]
     Active Substance: PANCRELIPASE AMYLASE\PANCRELIPASE LIPASE\PANCRELIPASE PROTEASE
  8. SPIRIVA [Concomitant]
     Active Substance: TIOTROPIUM BROMIDE MONOHYDRATE
  9. BUMETANIDE [Concomitant]
     Active Substance: BUMETANIDE
  10. HYDROXYCHLOROQUINE SULFATE [Concomitant]
     Active Substance: HYDROXYCHLOROQUINE SULFATE
  11. ALLOPURINOL [Concomitant]
     Active Substance: ALLOPURINOL
  12. LANTUS SOLOSTAR [Concomitant]
     Active Substance: INSULIN GLARGINE
  13. FLONASE [Concomitant]
     Active Substance: FLUTICASONE PROPIONATE
  14. ALBUTEROL SULFATE [Concomitant]
     Active Substance: ALBUTEROL SULFATE
  15. TADALAFIL [Concomitant]
     Active Substance: TADALAFIL
  16. ATORVASTATIN CALCIUM [Concomitant]
     Active Substance: ATORVASTATIN CALCIUM
  17. BISACODYL [Concomitant]
     Active Substance: BISACODYL
  18. LISINOPRIL [Concomitant]
     Active Substance: LISINOPRIL
  19. ALOGLIPTIN [Concomitant]
     Active Substance: ALOGLIPTIN
  20. GLIPIZIDE [Concomitant]
     Active Substance: GLIPIZIDE
  21. METOPROLOL SUCCINATE [Concomitant]
     Active Substance: METOPROLOL SUCCINATE
  22. COLCHICINE [Concomitant]
     Active Substance: COLCHICINE
  23. SYNTHROID [Concomitant]
     Active Substance: LEVOTHYROXINE SODIUM
  24. SPIRONOLACTONE [Concomitant]
     Active Substance: SPIRONOLACTONE
  25. ASPIRIN [Concomitant]
     Active Substance: ASPIRIN
  26. CETIRIZINE HCL [Concomitant]
     Active Substance: CETIRIZINE HYDROCHLORIDE
  27. MONTELUKAST SODIUM [Concomitant]
     Active Substance: MONTELUKAST\MONTELUKAST SODIUM
  28. STIOLTO RESPIMAT [Concomitant]
     Active Substance: OLODATEROL HYDROCHLORIDE\TIOTROPIUM BROMIDE MONOHYDRATE
  29. FERROUS SULFATE [Concomitant]
     Active Substance: FERROUS SULFATE
  30. LOPERAMIDE [Concomitant]
     Active Substance: LOPERAMIDE
  31. CHLORASEPTIC SORE THROAT [Concomitant]
     Active Substance: PHENOL
  32. OXYGEN [Concomitant]
     Active Substance: OXYGEN

REACTIONS (9)
  - Laryngitis [Not Recovered/Not Resolved]
  - Mobility decreased [Unknown]
  - Stomatitis [Not Recovered/Not Resolved]
  - Headache [Unknown]
  - Oedema [Recovered/Resolved]
  - Productive cough [Unknown]
  - Oral herpes [Recovered/Resolved]
  - Fluid retention [Unknown]
  - Product dose omission issue [Unknown]

NARRATIVE: CASE EVENT DATE: 20240101
